FAERS Safety Report 9212447 (Version 1)
Quarter: 2013Q2

REPORT INFORMATION
  Report Type: Spontaneous
  Country: US (occurrence: US)
  Receive Date: 20130404
  Receipt Date: 20130404
  Transmission Date: 20140414
  Serious: Yes (Hospitalization, Other)
  Sender: FDA-Public Use
  Company Number: US-AMGEN-USASP2013022582

PATIENT
  Age: 55 Year
  Sex: Female

DRUGS (3)
  1. ENBREL [Suspect]
     Indication: RHEUMATOID ARTHRITIS
     Dosage: UNK
     Dates: start: 20081107, end: 2009
  2. HUMIRA [Concomitant]
     Dosage: UNK
  3. REMICADE [Concomitant]
     Dosage: UNK

REACTIONS (12)
  - Foot deformity [Recovered/Resolved]
  - Physical disability [Not Recovered/Not Resolved]
  - Spinal fusion surgery [Recovered/Resolved]
  - Walking aid user [Not Recovered/Not Resolved]
  - Carpal tunnel syndrome [Not Recovered/Not Resolved]
  - Cubital tunnel syndrome [Recovered/Resolved]
  - Arthralgia [Not Recovered/Not Resolved]
  - Joint stiffness [Not Recovered/Not Resolved]
  - Grip strength decreased [Not Recovered/Not Resolved]
  - Skeletal injury [Not Recovered/Not Resolved]
  - Joint injury [Not Recovered/Not Resolved]
  - Memory impairment [Not Recovered/Not Resolved]
